FAERS Safety Report 4824963-5 (Version None)
Quarter: 2005Q4

REPORT INFORMATION
  Report Type: 
  Country: None (occurrence: None)
  Receive Date: 20051110
  Receipt Date: 20050714
  Transmission Date: 20060501
  Serious: Yes (Hospitalization, Other)
  Sender: FDA-Public Use
  Company Number: US-MERCK-0507USA02115

PATIENT
  Age: 65 Year
  Sex: Male

DRUGS (1)
  1. VIOXX [Suspect]
     Route: 048
     Dates: start: 20000425, end: 20040601

REACTIONS (21)
  - ANAEMIA POSTOPERATIVE [None]
  - ANGINA PECTORIS [None]
  - AORTIC ANEURYSM [None]
  - ATELECTASIS [None]
  - CARDIAC DISORDER [None]
  - CHEST DISCOMFORT [None]
  - CORONARY ARTERY DISEASE [None]
  - CORONARY ARTERY STENOSIS [None]
  - DIARRHOEA [None]
  - DIVERTICULUM [None]
  - GASTRITIS [None]
  - GASTROOESOPHAGEAL REFLUX DISEASE [None]
  - HAEMORRHOIDS [None]
  - ISCHAEMIA [None]
  - MEDIASTINITIS [None]
  - MYOCARDIAL INFARCTION [None]
  - MYOCARDIAL ISCHAEMIA [None]
  - PYREXIA [None]
  - RENAL CYST [None]
  - STAPHYLOCOCCAL INFECTION [None]
  - VENTRICULAR TACHYCARDIA [None]
